FAERS Safety Report 23284782 (Version 1)
Quarter: 2023Q4

REPORT INFORMATION
  Report Type: Spontaneous
  Country: US (occurrence: US)
  Receive Date: 20231211
  Receipt Date: 20231211
  Transmission Date: 20240110
  Serious: No
  Sender: FDA-Public Use
  Company Number: US-PERRIGO-23US010981

PATIENT
  Age: 74 Year
  Sex: Female
  Weight: 58.957 kg

DRUGS (3)
  1. GUAIFENESIN [Suspect]
     Active Substance: GUAIFENESIN
     Indication: Sinus congestion
     Dosage: 600 MG, Q12H
     Route: 048
     Dates: start: 202307, end: 20230911
  2. GUAIFENESIN [Suspect]
     Active Substance: GUAIFENESIN
     Indication: Chest discomfort
     Dosage: 1200 MG, SINGLE
     Route: 048
     Dates: start: 20230912, end: 20230912
  3. GUAIFENESIN [Suspect]
     Active Substance: GUAIFENESIN
     Indication: Paranasal sinus hypersecretion

REACTIONS (7)
  - Dysgeusia [Not Recovered/Not Resolved]
  - Decreased appetite [Not Recovered/Not Resolved]
  - Weight decreased [Not Recovered/Not Resolved]
  - Headache [Not Recovered/Not Resolved]
  - Drug ineffective [Unknown]
  - Incorrect product administration duration [Unknown]
  - Off label use [Unknown]

NARRATIVE: CASE EVENT DATE: 20230701
